FAERS Safety Report 16328523 (Version 3)
Quarter: 2019Q3

REPORT INFORMATION
  Report Type: Spontaneous
  Country: GB (occurrence: GB)
  Receive Date: 20190518
  Receipt Date: 20190706
  Transmission Date: 20191004
  Serious: Yes (Hospitalization, Other)
  Sender: FDA-Public Use
  Company Number: GB-009507513-1905GBR006810

PATIENT
  Age: 71 Year
  Sex: Male
  Weight: 99.4 kg

DRUGS (5)
  1. BISOPROLOL [Concomitant]
     Active Substance: BISOPROLOL
     Dosage: UNK
  2. PEMBROLIZUMAB. [Suspect]
     Active Substance: PEMBROLIZUMAB
     Indication: BLADDER CANCER
     Dosage: 200 MILLIGRAM, Q3W, 21 ST CYCLE
     Route: 042
     Dates: start: 20180219, end: 20190416
  3. PERINDOPRIL [Concomitant]
     Active Substance: PERINDOPRIL
     Dosage: UNK
  4. ROSUVASTATIN. [Concomitant]
     Active Substance: ROSUVASTATIN
     Dosage: UNK
  5. FUROSEMIDE. [Concomitant]
     Active Substance: FUROSEMIDE
     Dosage: UNK

REACTIONS (9)
  - Hypotension [Unknown]
  - Immunodeficiency [Unknown]
  - Sepsis [Unknown]
  - Cellulitis [Unknown]
  - Colitis [Recovered/Resolved with Sequelae]
  - Malignant neoplasm progression [Unknown]
  - Diarrhoea [Unknown]
  - Renal failure [Recovered/Resolved]
  - Urinary tract infection [Unknown]

NARRATIVE: CASE EVENT DATE: 2019
